FAERS Safety Report 19900086 (Version 1)
Quarter: 2021Q3

REPORT INFORMATION
  Report Type: Spontaneous
  Country: US (occurrence: US)
  Receive Date: 20210929
  Receipt Date: 20210929
  Transmission Date: 20211014
  Serious: Yes (Other)
  Sender: FDA-Public Use
  Company Number: US-ASTRAZENECA-2021A745171

PATIENT
  Sex: Male
  Weight: 72.6 kg

DRUGS (1)
  1. TUDORZA PRESSAIR [Suspect]
     Active Substance: ACLIDINIUM BROMIDE
     Indication: CHRONIC OBSTRUCTIVE PULMONARY DISEASE
     Dosage: TUDORZA PRESSAIR 400 MCG 60 METERED DOSE INHALER ? CIRCASSIA
     Route: 055
     Dates: start: 2011

REACTIONS (2)
  - Prostate cancer [Unknown]
  - Device delivery system issue [Unknown]
